FAERS Safety Report 9424321 (Version 1)
Quarter: 2013Q3

REPORT INFORMATION
  Report Type: Spontaneous
  Country: US (occurrence: None)
  Receive Date: 20130726
  Receipt Date: 20130726
  Transmission Date: 20140515
  Serious: No
  Sender: FDA-Public Use
  Company Number: None

PATIENT
  Age: 68 Year
  Sex: Female
  Weight: 94 kg

DRUGS (3)
  1. CYCLOPHOSPHAMIDE [Suspect]
  2. DOXORUBICIN [Suspect]
  3. PACLITAXEL [Suspect]

REACTIONS (2)
  - Anaemia [None]
  - Myelodysplastic syndrome [None]
